FAERS Safety Report 5333783-7 (Version None)
Quarter: 2007Q2

REPORT INFORMATION
  Report Type: 
  Country: None (occurrence: None)
  Receive Date: 20070524
  Receipt Date: 20070515
  Transmission Date: 20071010
  Serious: Yes (Hospitalization, Other)
  Sender: FDA-Public Use
  Company Number: US-ELI_LILLY_AND_COMPANY-US200704004989

PATIENT
  Age: 62 Year
  Sex: Male

DRUGS (3)
  1. HUMULIN 70/30 [Suspect]
     Indication: DIABETES MELLITUS
     Dosage: UNK, 3/D
  2. ACTOS [Concomitant]
     Indication: DIABETES MELLITUS
  3. METFORMIN HCL [Concomitant]

REACTIONS (9)
  - BLINDNESS [None]
  - BLOOD GLUCOSE INCREASED [None]
  - CAROTID ARTERY STENOSIS [None]
  - CORONARY ARTERY DISEASE [None]
  - DIABETIC RETINOPATHY [None]
  - DRUG INEFFECTIVE [None]
  - PERIPHERAL VASCULAR DISORDER [None]
  - RENAL ARTERY STENOSIS [None]
  - WOUND INFECTION [None]
